FAERS Safety Report 16239027 (Version 1)
Quarter: 2019Q2

REPORT INFORMATION
  Report Type: Spontaneous
  Country: US (occurrence: US)
  Receive Date: 20190321
  Receipt Date: 20190321
  Transmission Date: 20190711
  Serious: No
  Sender: FDA-Public Use
  Company Number: None

PATIENT
  Age: 72 Year
  Sex: Male
  Weight: 80.7 kg

DRUGS (2)
  1. RIVASTIGMINE PATCH 13.3GM/24 HRS [Suspect]
     Active Substance: RIVASTIGMINE
     Route: 061
  2. MEMANTINE 5MG TAB [Suspect]
     Active Substance: MEMANTINE
     Indication: DEMENTIA ALZHEIMER^S TYPE
     Route: 048
     Dates: start: 20190222

REACTIONS (1)
  - Hyperpyrexia [None]

NARRATIVE: CASE EVENT DATE: 20190224
